FAERS Safety Report 5972645-9 (Version None)
Quarter: 2008Q4

REPORT INFORMATION
  Report Type: 
  Country: None (occurrence: None)
  Receive Date: 20081201
  Receipt Date: 20081120
  Transmission Date: 20090506
  Serious: Yes (Hospitalization)
  Sender: FDA-Public Use
  Company Number: US-NOVOPROD-278608

PATIENT
  Age: 52 Year
  Sex: Male

DRUGS (1)
  1. NOVOLOG [Suspect]
     Indication: INSULIN-REQUIRING TYPE 2 DIABETES MELLITUS
     Dosage: 3 TO 4 IU, AC
     Route: 058

REACTIONS (3)
  - DYSPNOEA [None]
  - INJECTION SITE RASH [None]
  - PALPITATIONS [None]
